FAERS Safety Report 6682463-4 (Version None)
Quarter: 2010Q2

REPORT INFORMATION
  Report Type: 
  Country: None (occurrence: None)
  Receive Date: 20100415
  Receipt Date: 20100401
  Transmission Date: 20101027
  Serious: Yes (Hospitalization, Other)
  Sender: FDA-Public Use
  Company Number: PHEH2008US01437

PATIENT
  Sex: Female

DRUGS (46)
  1. ZOMETA [Suspect]
     Indication: OSTEOPOROSIS
     Dosage: 4 MG, UNK
     Dates: start: 20050712, end: 20060706
  2. ZOMETA [Suspect]
     Dosage: 3.3 MG, UNK
  3. ACETAMINOPHEN AND HYDROCODONE BITARTRATE [Concomitant]
  4. PROCHLORPERAZINE [Concomitant]
  5. ARIMIDEX [Concomitant]
  6. UNIVASC [Concomitant]
  7. OMEPRAZOLE [Concomitant]
  8. ORPHENADRINE CITRATE [Concomitant]
  9. EFFEXOR [Concomitant]
  10. ATENOLOL [Concomitant]
  11. CLINORIL [Concomitant]
  12. TRAMADOL HCL [Concomitant]
  13. FLUOXETINE [Concomitant]
  14. NAPROXEN [Concomitant]
  15. TRIAMTERENE AND HYDROCHLOROTHIAZID ^HARRIS^ [Concomitant]
  16. QUININE SULFATE [Concomitant]
  17. DIPHENHYDRAMINE HYDROCHLORIDE [Concomitant]
  18. SPIRONOLACTONE [Concomitant]
  19. SUCRALFATE [Concomitant]
  20. MYTUSSIN DAC [Concomitant]
  21. NEXIUM [Concomitant]
  22. CEPHALEXIN [Concomitant]
  23. SULINDAC [Concomitant]
  24. CLINDAMYCIN [Concomitant]
  25. AMOXICILLIN W/CLAVULANATE POTASSIUM [Concomitant]
  26. GABAPENTIN [Concomitant]
  27. DAPSONE [Concomitant]
  28. HYDROCORTISONE [Concomitant]
     Dosage: 10 MG, BID
  29. FUROSEMIDE [Concomitant]
  30. MIRAPEX [Concomitant]
  31. BENICAR [Concomitant]
  32. VENLAFAXINE HCL [Concomitant]
  33. AMBIEN [Concomitant]
  34. DEPO-MEDROL [Concomitant]
     Dosage: 80 MG, QMO
  35. VYTONE [Concomitant]
     Dosage: UNK MG, TID
     Route: 061
     Dates: start: 20080123
  36. KEFLEX [Concomitant]
  37. NORVASC [Concomitant]
  38. ULTRAM [Concomitant]
  39. VICODIN [Concomitant]
  40. CHLORDIAZEPOXIDE W/CLIDINIUM BROMIDE [Concomitant]
  41. DESOXIMETASONE [Concomitant]
  42. DIPHENOXYLATE HCL AND ATROPINE SULFATE [Concomitant]
  43. LISINOPRIL [Concomitant]
  44. MECLIZINE [Concomitant]
  45. MOBIC [Concomitant]
  46. COMPAZINE [Concomitant]

REACTIONS (48)
  - ABDOMINAL PAIN [None]
  - ABDOMINAL PAIN LOWER [None]
  - ANKLE FRACTURE [None]
  - ANXIETY [None]
  - BONE DEBRIDEMENT [None]
  - BURSITIS [None]
  - CATARACT [None]
  - CONJUNCTIVOCHALASIS [None]
  - CORNEAL DYSTROPHY [None]
  - DEBRIDEMENT [None]
  - DERMATITIS CONTACT [None]
  - DIARRHOEA [None]
  - DIVERTICULUM [None]
  - DRY EYE [None]
  - DRY MOUTH [None]
  - ECZEMA [None]
  - ELECTROCARDIOGRAM T WAVE ABNORMAL [None]
  - FALL [None]
  - GASTRITIS [None]
  - GASTROOESOPHAGEAL REFLUX DISEASE [None]
  - GENERAL PHYSICAL HEALTH DETERIORATION [None]
  - GLARE [None]
  - HYPONATRAEMIA [None]
  - INTERTRIGO [None]
  - JOINT DISLOCATION [None]
  - JOINT DISLOCATION REDUCTION [None]
  - LEFT ATRIAL DILATATION [None]
  - MELANOSIS COLI [None]
  - MICROANGIOPATHY [None]
  - MUCOSAL INFLAMMATION [None]
  - OBESITY [None]
  - ORAL SURGERY [None]
  - OSTEONECROSIS [None]
  - OSTEOPENIA [None]
  - OTITIS MEDIA [None]
  - PAIN [None]
  - PRURITUS [None]
  - PYODERMA GANGRENOSUM [None]
  - RESORPTION BONE INCREASED [None]
  - ROAD TRAFFIC ACCIDENT [None]
  - ROTATOR CUFF REPAIR [None]
  - ROTATOR CUFF SYNDROME [None]
  - SKIN GRAFT [None]
  - SKIN ULCER [None]
  - SYNCOPE [None]
  - ULNAR NEURITIS [None]
  - VITREOUS FLOATERS [None]
  - WOUND INFECTION PSEUDOMONAS [None]
